FAERS Safety Report 4728541-8 (Version None)
Quarter: 2005Q3

REPORT INFORMATION
  Report Type: 
  Country: None (occurrence: None)
  Receive Date: 20050729
  Receipt Date: 20050721
  Transmission Date: 20060218
  Serious: Yes (Other)
  Sender: FDA-Public Use
  Company Number: JP-JNJFOC-20050705244

PATIENT
  Age: 69 Year
  Sex: Female

DRUGS (6)
  1. CRAVIT [Suspect]
     Indication: DRUG USE FOR UNKNOWN INDICATION
     Route: 048
     Dates: start: 20050719
  2. NIFLAN [Concomitant]
     Route: 065
  3. KOLANTYL [Concomitant]
     Route: 048
  4. KOLANTYL [Concomitant]
     Route: 048
  5. KOLANTYL [Concomitant]
     Route: 048
  6. KOLANTYL [Concomitant]
     Route: 048

REACTIONS (4)
  - BLOOD PRESSURE DECREASED [None]
  - DISSEMINATED INTRAVASCULAR COAGULATION [None]
  - RASH GENERALISED [None]
  - RESPIRATORY FAILURE [None]
